FAERS Safety Report 7809195-0 (Version None)
Quarter: 2011Q4

REPORT INFORMATION
  Report Type: 
  Country: None (occurrence: None)
  Receive Date: 20111012
  Receipt Date: 20111011
  Transmission Date: 20120403
  Serious: Yes (Death)
  Sender: FDA-Public Use
  Company Number: IT-SANOFI-AVENTIS-2011SA065357

PATIENT
  Age: 66 Year
  Sex: Male

DRUGS (4)
  1. TAXOTERE [Suspect]
     Indication: PROSTATE CANCER METASTATIC
     Route: 041
     Dates: start: 20110909, end: 20110909
  2. CALCIUM CARBONATE [Concomitant]
  3. ELIGARD [Concomitant]
  4. ZOMETA [Concomitant]

REACTIONS (11)
  - HYPERSENSITIVITY [None]
  - HYPOTENSION [None]
  - THROMBOCYTOPENIA [None]
  - SKIN TOXICITY [None]
  - MULTI-ORGAN FAILURE [None]
  - CONJUNCTIVITIS [None]
  - CARDIOTOXICITY [None]
  - MUCOSAL INFLAMMATION [None]
  - ANAEMIA [None]
  - ANAPHYLACTIC REACTION [None]
  - RENAL FAILURE ACUTE [None]
